FAERS Safety Report 18373651 (Version 4)
Quarter: 2020Q4

REPORT INFORMATION
  Report Type: Spontaneous
  Country: PT (occurrence: PT)
  Receive Date: 20201013
  Receipt Date: 20201120
  Transmission Date: 20210114
  Serious: Yes (Hospitalization, Other)
  Sender: FDA-Public Use
  Company Number: PT-AUROBINDO-AUR-APL-2020-051583

PATIENT
  Age: 70 Year
  Sex: Female

DRUGS (3)
  1. AMIODARONE [Suspect]
     Active Substance: AMIODARONE
     Indication: ATRIAL FIBRILLATION
     Dosage: 300 MILLIGRAM, ONCE A DAY
     Route: 065
  2. PREDNISOLONE. [Concomitant]
     Active Substance: PREDNISOLONE
     Indication: ATRIAL FIBRILLATION
     Dosage: 40 MILLIGRAM, ONCE A DAY
     Route: 065
  3. THIAMAZOLE [Concomitant]
     Active Substance: METHIMAZOLE
     Indication: ATRIAL FIBRILLATION
     Dosage: 30 MILLIGRAM, ONCE A DAY
     Route: 065

REACTIONS (10)
  - Thyrotoxic crisis [Recovered/Resolved]
  - Cardiomegaly [Unknown]
  - Hyperthyroidism [Recovered/Resolved]
  - Fatigue [Recovered/Resolved]
  - Thyroiditis [Recovered/Resolved]
  - Dizziness [Recovered/Resolved]
  - Atrial fibrillation [Unknown]
  - Hyperhidrosis [Recovered/Resolved]
  - Palpitations [Recovered/Resolved]
  - Tachycardia [Recovered/Resolved]
